FAERS Safety Report 10048617 (Version 1)
Quarter: 2014Q1

REPORT INFORMATION
  Report Type: Spontaneous
  Country: US (occurrence: None)
  Receive Date: 20140327
  Receipt Date: 20140327
  Transmission Date: 20141002
  Serious: Yes (Hospitalization)
  Sender: FDA-Public Use
  Company Number: UTC-046235

PATIENT
  Age: 75 Year
  Sex: Female

DRUGS (12)
  1. REMODULIN (5 MILLIGRAM/MILLILITERS INJECTION FOR INFUSION) (TREPROSTINIL SODIUM) [Suspect]
     Indication: PULMONARY ARTERIAL HYPERTENSION
     Dosage: 25.92UG/KG (0.018 UG/KG, 1 IN1MIN) SUBCUTANEOUS
     Route: 058
     Dates: start: 20140129
  2. ADCIRCA (TADALAFIL) [Concomitant]
  3. AZITHROMYCIN (AZITHROMYCIN) [Concomitant]
  4. PREDNISONE (PREDNISONE) [Concomitant]
  5. MEDROL (METHYLPREDNISOLONE) [Concomitant]
  6. TRAMADOL (TRAMADOL) [Concomitant]
  7. BROVANA (ARPORMOTEROL TARTRATE) [Concomitant]
  8. PULMICORT (BUDESONIDE) [Concomitant]
  9. SPIRIVA (TIOTROPIUM BROMIDE) [Concomitant]
  10. POTASSIUM (POTASSIUM) [Concomitant]
  11. PUROSEMIDE (PUROSEMIDE) [Concomitant]
  12. VITAMIN D (ERGOCALCIFEROL) [Concomitant]

REACTIONS (3)
  - Abdominal discomfort [None]
  - Pain in extremity [None]
  - Headache [None]
